FAERS Safety Report 9238842 (Version 2)
Quarter: 2013Q2

REPORT INFORMATION
  Report Type: Spontaneous
  Country: JP (occurrence: JP)
  Receive Date: 20130418
  Receipt Date: 20130429
  Transmission Date: 20140414
  Serious: Yes (Other)
  Sender: FDA-Public Use
  Company Number: JP-B.I. PHARMACEUTICALS,INC./RIDGEFIELD-2013-BI-10101NB

PATIENT
  Age: 57 Year
  Sex: Male

DRUGS (2)
  1. BI-SIFROL [Suspect]
     Indication: PARKINSON^S DISEASE
     Dosage: 2 MG
     Route: 048
  2. MENESIT [Concomitant]
     Indication: PARKINSON^S DISEASE
     Dosage: 1000 MG
     Route: 048

REACTIONS (1)
  - Gastric disorder [Recovered/Resolved]
